FAERS Safety Report 9590108 (Version 1)
Quarter: 2013Q4

REPORT INFORMATION
  Report Type: Spontaneous
  Country: US (occurrence: US)
  Receive Date: 20131003
  Receipt Date: 20131003
  Transmission Date: 20140711
  Serious: No
  Sender: FDA-Public Use
  Company Number: US-AMGEN-USASP2012074482

PATIENT
  Sex: Female

DRUGS (23)
  1. ENBREL [Suspect]
     Indication: RHEUMATOID ARTHRITIS
     Dosage: 25 MG, 2 TIMES/WK
     Route: 058
     Dates: end: 2011
  2. PLAQUENIL                          /00072602/ [Concomitant]
     Dosage: 200 MG, UNK
  3. PREMARIN [Concomitant]
     Dosage: 0.625 MG, UNK
  4. ZOLOFT [Concomitant]
     Dosage: 100 MG, UNK
  5. SYNTHROID [Concomitant]
     Dosage: 50 MUG, UNK
  6. ALLEGRA [Concomitant]
     Dosage: 30 MG, UNK
  7. TRAMADOL HYDROCHLORIDE [Concomitant]
     Dosage: 50 MG, UNK
  8. LORAZEPAM [Concomitant]
     Dosage: 1 MG, UNK
  9. FLONASE [Concomitant]
     Dosage: 0.05 %, UNK
  10. PREVACID [Concomitant]
     Dosage: 30 MG, UNK
  11. BENADRYL                           /00000402/ [Concomitant]
     Dosage: 12.5/5ML
  12. SUDAFED                            /00076302/ [Concomitant]
     Dosage: 30 MG, UNK
  13. MULTIVITAMINS, PLAIN [Concomitant]
     Dosage: UNK
  14. PREDNISONE [Concomitant]
     Dosage: 5 MG, UNK
  15. SULFASALAZIN [Concomitant]
     Dosage: 500 MG, UNK
  16. VITAMIN C                          /00008001/ [Concomitant]
     Dosage: 500 MG, UNK
  17. NASAFLO NETI POT                   /00049401/ [Concomitant]
     Dosage: UNK
  18. CLARITIN                           /00413701/ [Concomitant]
     Dosage: 10 MG, UNK
  19. BIOTIN [Concomitant]
     Dosage: 5000
  20. METAMUCIL                          /00029101/ [Concomitant]
     Dosage: 0.52 UNK, UNK
  21. MAGNESIUM [Concomitant]
     Dosage: 500 MG, UNK
  22. CYTOMEL [Concomitant]
     Dosage: 5 MUG, UNK
  23. PROBIOTIC                          /06395501/ [Concomitant]
     Dosage: UNK

REACTIONS (1)
  - Sinusitis [Unknown]
